FAERS Safety Report 16347491 (Version 1)
Quarter: 2019Q2

REPORT INFORMATION
  Report Type: Spontaneous
  Country: DE (occurrence: DE)
  Receive Date: 20190523
  Receipt Date: 20190523
  Transmission Date: 20190711
  Serious: Yes (Hospitalization)
  Sender: FDA-Public Use
  Company Number: DE-MYLANLABS-2019M1046961

PATIENT
  Age: 53 Year
  Sex: Male
  Weight: 140 kg

DRUGS (4)
  1. PIPAMPERON [Suspect]
     Active Substance: PIPAMPERONE HYDROCHLORIDE
     Indication: SLEEP DISORDER
     Dosage: 40 MILLIGRAM
     Route: 048
     Dates: start: 201708
  2. QUETIAPIN 1A PHARMA [Suspect]
     Active Substance: QUETIAPINE
     Indication: SLEEP DISORDER
     Dosage: 25 MILLIGRAM
     Route: 048
     Dates: start: 201702
  3. MIRTAZAPINE. [Suspect]
     Active Substance: MIRTAZAPINE
     Indication: SLEEP DISORDER
     Dosage: 30 MILLIGRAM, 2 MONTHS
     Route: 048
  4. TRIMIPRAMIN                        /00051802/ [Suspect]
     Active Substance: TRIMIPRAMINE MALEATE
     Indication: SLEEP DISORDER
     Dosage: DAILY DOSE: 40 GTT DROP(S) EVERY TOTAL

REACTIONS (8)
  - Apathy [Unknown]
  - Middle insomnia [Unknown]
  - Weight increased [Unknown]
  - Initial insomnia [Unknown]
  - Respiratory disorder [Unknown]
  - Constipation [Unknown]
  - Temperature regulation disorder [Unknown]
  - Dependence [Unknown]
